FAERS Safety Report 5011610-5 (Version None)
Quarter: 2006Q2

REPORT INFORMATION
  Report Type: 
  Country: None (occurrence: None)
  Receive Date: 20060404
  Receipt Date: 20060118
  Transmission Date: 20061013
  Serious: No
  Sender: FDA-Public Use
  Company Number: US200601003131

PATIENT
  Age: 52 Year
  Sex: Female

DRUGS (4)
  1. CYMBALTA [Suspect]
     Indication: NEURALGIA
     Dosage: SEE IMAGE
     Dates: start: 20051101
  2. PRILOSEC [Concomitant]
  3. ASPIRIN W/CODEINE (ACETYLSALICYLIC ACID, CODEINE PHOSPHATE) [Concomitant]
  4. DEMEROL [Concomitant]

REACTIONS (4)
  - ABNORMAL DREAMS [None]
  - FEELING ABNORMAL [None]
  - SLEEP DISORDER [None]
  - VISUAL DISTURBANCE [None]
